FAERS Safety Report 9272502 (Version 2)
Quarter: 2013Q2

REPORT INFORMATION
  Report Type: Spontaneous
  Country: US (occurrence: US)
  Receive Date: 20130506
  Receipt Date: 20130524
  Transmission Date: 20140414
  Serious: Yes (Hospitalization, Other)
  Sender: FDA-Public Use
  Company Number: US-PFIZER INC-2013139867

PATIENT
  Age: 33 Year
  Sex: Female
  Weight: 159 kg

DRUGS (6)
  1. LYRICA [Suspect]
     Indication: NEUROPATHY PERIPHERAL
     Dosage: 600 MG, 2X/DAY
     Dates: start: 201004
  2. CELEXA [Suspect]
     Indication: DEPRESSION
     Dosage: UNK
     Dates: start: 201208, end: 20130123
  3. CYMBALTA [Concomitant]
     Indication: NEUROPATHY PERIPHERAL
     Dosage: 90 MG, 1X/DAY
  4. HYDROCHLOROTHIAZIDE [Concomitant]
     Indication: SWELLING
     Dosage: 2.5 MG, 1X/DAY
  5. MAXIMUM D3 [Concomitant]
     Dosage: UNK
  6. METANX [Concomitant]
     Dosage: UNK

REACTIONS (3)
  - Cerebrovascular accident [Unknown]
  - Convulsion [Unknown]
  - Pain [Unknown]
